FAERS Safety Report 14624291 (Version 1)
Quarter: 2018Q1

REPORT INFORMATION
  Report Type: Spontaneous
  Country: US (occurrence: US)
  Receive Date: 20180309
  Receipt Date: 20180309
  Transmission Date: 20180509
  Serious: Yes (Hospitalization, Other)
  Sender: FDA-Public Use
  Company Number: None

PATIENT
  Age: 57 Year
  Sex: Female
  Weight: 74.25 kg

DRUGS (5)
  1. AMLLOPODINE [Concomitant]
  2. RISPERDONE [Concomitant]
     Active Substance: RISPERIDONE
  3. ABILIFY [Suspect]
     Active Substance: ARIPIPRAZOLE
     Indication: DEPRESSION
     Route: 048
  4. CYMBALS [Concomitant]
  5. WELLBUTRON [Concomitant]

REACTIONS (3)
  - Obsessive-compulsive disorder [None]
  - Headache [None]
  - Ill-defined disorder [None]

NARRATIVE: CASE EVENT DATE: 20000309
